FAERS Safety Report 10373789 (Version 2)
Quarter: 2016Q3

REPORT INFORMATION
  Report Type: Report from Study
  Country: BR (occurrence: BR)
  Receive Date: 20140809
  Receipt Date: 20160729
  Transmission Date: 20161109
  Serious: Yes (Hospitalization, Disabling, Other)
  Sender: FDA-Public Use
  Company Number: BR-ABBVIE-14K-020-1267417-00

PATIENT
  Sex: Female
  Weight: 86 kg

DRUGS (6)
  1. HUMIRA [Suspect]
     Active Substance: ADALIMUMAB
     Indication: CROHN^S DISEASE
     Route: 058
     Dates: start: 20120901
  2. FOLINER [Concomitant]
     Indication: DISCOMFORT
     Route: 048
     Dates: start: 2005
  3. SIMVASTATINE [Concomitant]
     Active Substance: SIMVASTATIN
     Indication: BLOOD CHOLESTEROL
     Route: 048
  4. ATENOLOL. [Concomitant]
     Active Substance: ATENOLOL
     Indication: CARDIAC DISORDER
     Route: 048
     Dates: start: 2006
  5. LOSARTAN. [Concomitant]
     Active Substance: LOSARTAN
     Indication: BLOOD PRESSURE ABNORMAL
     Route: 048
     Dates: start: 2014
  6. MESALAZINE [Concomitant]
     Active Substance: MESALAMINE
     Indication: COLITIS
     Route: 048
     Dates: start: 2005

REACTIONS (6)
  - Sinusitis [Not Recovered/Not Resolved]
  - Osteoarthritis [Recovered/Resolved]
  - Device dislocation [Not Recovered/Not Resolved]
  - Abasia [Recovered/Resolved]
  - Bone erosion [Unknown]
  - Complication associated with device [Unknown]
